FAERS Safety Report 8578307-6 (Version None)
Quarter: 2012Q3

REPORT INFORMATION
  Report Type: 
  Country: None (occurrence: None)
  Receive Date: 20120726
  Receipt Date: 20120710
  Transmission Date: 20120928
  Serious: Yes (Hospitalization)
  Sender: FDA-Public Use
  Company Number: JPI-P-022630

PATIENT
  Age: 59 Year
  Sex: Female

DRUGS (2)
  1. XYREM [Suspect]
     Indication: NARCOLEPSY
     Dosage: 4.5;9 GM (2.25;4.5 GM, 2 IN 1 D), ORAL
     Route: 048
     Dates: start: 20110426
  2. XYREM [Suspect]
     Indication: NARCOLEPSY
     Dosage: 4.5;9 GM (2.25;4.5 GM, 2 IN 1 D), ORAL
     Route: 048
     Dates: start: 20110512

REACTIONS (5)
  - SPINAL FUSION SURGERY [None]
  - NAUSEA [None]
  - DIZZINESS [None]
  - INTERVERTEBRAL DISC OPERATION [None]
  - HEADACHE [None]
